FAERS Safety Report 17410310 (Version 1)
Quarter: 2020Q1

REPORT INFORMATION
  Report Type: Spontaneous
  Country: US (occurrence: US)
  Receive Date: 20200212
  Receipt Date: 20200212
  Transmission Date: 20200409
  Serious: Yes (Death, Other)
  Sender: FDA-Public Use
  Company Number: US-VIIV HEALTHCARE LIMITED-US2019GSK143264

PATIENT

DRUGS (5)
  1. RILPIVIRINE [Suspect]
     Active Substance: RILPIVIRINE
     Indication: HIV INFECTION
     Dosage: UNK
  2. DOLUTEGRAVIR [Suspect]
     Active Substance: DOLUTEGRAVIR
     Indication: HIV INFECTION
     Dosage: UNK
  3. TENOFOVIR DISOPROXIL FUMARATE. [Suspect]
     Active Substance: TENOFOVIR DISOPROXIL FUMARATE
     Indication: HIV INFECTION
     Dosage: UNK
  4. ZIDOVUDINE. [Suspect]
     Active Substance: ZIDOVUDINE
     Indication: HIV INFECTION
     Dosage: UNK
  5. EMTRICITABINE [Suspect]
     Active Substance: EMTRICITABINE
     Indication: HIV INFECTION
     Dosage: UNK

REACTIONS (18)
  - Central nervous system inflammation [Fatal]
  - JC virus infection [Unknown]
  - Dysphagia [Unknown]
  - Muscle spasms [Unknown]
  - Central nervous system immune reconstitution inflammatory response [Fatal]
  - Tremor [Unknown]
  - Gait disturbance [Unknown]
  - Dysphemia [Unknown]
  - Mental status changes [Unknown]
  - Aphasia [Unknown]
  - Muscular weakness [Unknown]
  - Choreoathetosis [Unknown]
  - Dysarthria [Unknown]
  - Leukocytosis [Unknown]
  - Condition aggravated [Unknown]
  - Gait inability [Unknown]
  - Progressive multifocal leukoencephalopathy [Fatal]
  - Pyrexia [Unknown]
